FAERS Safety Report 8404108-5 (Version None)
Quarter: 2012Q2

REPORT INFORMATION
  Report Type: 
  Country: None (occurrence: None)
  Receive Date: 20120601
  Receipt Date: 20120530
  Transmission Date: 20120825
  Serious: Yes (Other)
  Sender: FDA-Public Use
  Company Number: PHHY2012PT046232

PATIENT
  Age: 8 Year
  Sex: Male

DRUGS (3)
  1. PENICILLIN G SODIUM [Suspect]
  2. PREDNISOLONE [Suspect]
  3. ACETYLSALICYLIC ACID SRT [Suspect]

REACTIONS (2)
  - HEPATITIS TOXIC [None]
  - PYREXIA [None]
